FAERS Safety Report 8344442-0 (Version None)
Quarter: 2012Q2

REPORT INFORMATION
  Report Type: 
  Country: None (occurrence: None)
  Receive Date: 20120508
  Receipt Date: 20120426
  Transmission Date: 20120825
  Serious: Yes (Hospitalization)
  Sender: FDA-Public Use
  Company Number: RO-ROCHE-1066484

PATIENT
  Sex: Female
  Weight: 55 kg

DRUGS (6)
  1. COPEGUS [Suspect]
     Dates: start: 20120314
  2. BLINDED ALISPORIVIR [Suspect]
     Dates: start: 20120314
  3. COPEGUS [Suspect]
     Indication: HEPATITIS C
     Dosage: LAST DOSE: 09/MAR/2012
     Dates: start: 20111213, end: 20120309
  4. PEGASYS [Suspect]
     Indication: HEPATITIS C
     Dosage: LAST DOSE: 07/MAR/2012
     Dates: start: 20111213, end: 20120307
  5. PEGASYS [Suspect]
     Dates: start: 20120320
  6. BLINDED ALISPORIVIR [Suspect]
     Indication: HEPATITIS C
     Dosage: LAST DOSE: 09/MAR/2012
     Dates: start: 20111213, end: 20120309

REACTIONS (2)
  - EPISTAXIS [None]
  - DEPRESSION [None]
